FAERS Safety Report 6150087-3 (Version None)
Quarter: 2009Q2

REPORT INFORMATION
  Report Type: 
  Country: None (occurrence: None)
  Receive Date: 20090407
  Receipt Date: 20090407
  Transmission Date: 20091009
  Serious: Yes (Death, Other)
  Sender: FDA-Public Use
  Company Number: None

PATIENT
  Sex: Female
  Weight: 62.5 kg

DRUGS (10)
  1. DEFIBRITIDE [Suspect]
     Indication: VENOOCCLUSIVE DISEASE
     Dosage: 390MG EVERY 6 HOURS IV
     Route: 042
     Dates: start: 20090310, end: 20090319
  2. ACTIGALL [Concomitant]
  3. ZOFRAN [Concomitant]
  4. PROTONIX [Concomitant]
  5. PHENOBARBITAL [Concomitant]
  6. BENADRYL [Concomitant]
  7. MORPHINE [Concomitant]
  8. ATIVAN [Concomitant]
  9. FENTANYL [Concomitant]
  10. VECURONIUM BROMIDE [Concomitant]

REACTIONS (3)
  - AZOTAEMIA [None]
  - BLOOD PRESSURE INCREASED [None]
  - VENOOCCLUSIVE DISEASE [None]
